FAERS Safety Report 23628145 (Version 1)
Quarter: 2024Q1

REPORT INFORMATION
  Report Type: Spontaneous
  Country: KR (occurrence: KR)
  Receive Date: 20240313
  Receipt Date: 20240313
  Transmission Date: 20240410
  Serious: Yes (Life-Threatening)
  Sender: FDA-Public Use
  Company Number: KR-ROCHE-3521015

PATIENT
  Sex: Male
  Weight: 63.8 kg

DRUGS (1)
  1. MIRCERA [Suspect]
     Active Substance: METHOXY POLYETHYLENE GLYCOL-EPOETIN BETA
     Indication: Product used for unknown indication
     Dosage: 120UG/0.3ML
     Route: 042

REACTIONS (5)
  - Dyspnoea [Unknown]
  - Hypotension [Unknown]
  - Angioedema [Unknown]
  - Urticaria [Unknown]
  - Pruritus [Unknown]
